FAERS Safety Report 8172825-0 (Version None)
Quarter: 2012Q1

REPORT INFORMATION
  Report Type: 
  Country: None (occurrence: None)
  Receive Date: 20120223
  Receipt Date: 20120209
  Transmission Date: 20120608
  Serious: Yes (Hospitalization)
  Sender: FDA-Public Use
  Company Number: AUR-APL-2012-01011

PATIENT
  Age: 4 Month
  Sex: Female

DRUGS (4)
  1. SAQUINAVIR (SAQUINAVIR) [Suspect]
     Indication: ANTIRETROVIRAL THERAPY
     Dosage: TRANSPLACENTAL
     Route: 064
     Dates: start: 20090701, end: 20100601
  2. RITONAVIR [Suspect]
     Indication: ANTIRETROVIRAL THERAPY
     Dosage: TRANSPLACENTAL
     Route: 064
     Dates: start: 20090701, end: 20100601
  3. ZIDOVUDINE [Suspect]
     Indication: PROPHYLAXIS
     Dosage: 4MG/KG, TRANSPLACENTAL
     Route: 064
     Dates: start: 20101106
  4. LAMIVUDINE (LAMIVUDINE) [Suspect]
     Indication: ANTIRETROVIRAL THERAPY
     Dosage: TRANSPLACENTAL
     Route: 064
     Dates: start: 20090701, end: 20100601

REACTIONS (3)
  - EOSINOPHILIA [None]
  - MATERNAL DRUGS AFFECTING FOETUS [None]
  - NEONATAL DISORDER [None]
